FAERS Safety Report 8426829-0 (Version None)
Quarter: 2012Q2

REPORT INFORMATION
  Report Type: 
  Country: None (occurrence: None)
  Receive Date: 20120611
  Receipt Date: 20120606
  Transmission Date: 20120825
  Serious: Yes (Other)
  Sender: FDA-Public Use
  Company Number: US-ROCHE-1047352

PATIENT
  Sex: Male

DRUGS (1)
  1. ACCUTANE [Suspect]
     Indication: ACNE
     Route: 065
     Dates: start: 19950101, end: 19970101

REACTIONS (10)
  - INJURY [None]
  - INTESTINAL OBSTRUCTION [None]
  - ANXIETY [None]
  - STRESS [None]
  - SELF ESTEEM DECREASED [None]
  - INFLAMMATORY BOWEL DISEASE [None]
  - IRRITABLE BOWEL SYNDROME [None]
  - EMOTIONAL DISTRESS [None]
  - CROHN'S DISEASE [None]
  - DEPRESSION [None]
